FAERS Safety Report 15348085 (Version 2)
Quarter: 2018Q4

REPORT INFORMATION
  Report Type: Spontaneous
  Country: US (occurrence: US)
  Receive Date: 20180904
  Receipt Date: 20181005
  Transmission Date: 20190204
  Serious: No
  Sender: FDA-Public Use
  Company Number: US-MYLANLABS-2018M1063441

PATIENT
  Age: 53 Year
  Sex: Male
  Weight: 95 kg

DRUGS (3)
  1. LORAZEPAM TABLETS USP [Suspect]
     Active Substance: LORAZEPAM
     Dosage: 1 MG, (ONCE OR TWICE A DAY ALTERNATING)
     Route: 048
  2. CELEXA [Concomitant]
     Active Substance: CITALOPRAM HYDROBROMIDE
     Indication: DEPRESSION
     Dosage: UNK
  3. LORAZEPAM TABLETS USP [Suspect]
     Active Substance: LORAZEPAM
     Indication: ANXIETY
     Dosage: 1 MG, BID (ANOTHER 1 MG AS NEEDED)
     Route: 048

REACTIONS (4)
  - Anxiety [Recovering/Resolving]
  - Depression [Recovering/Resolving]
  - Wrong technique in product usage process [Not Recovered/Not Resolved]
  - Drug ineffective [Unknown]
